FAERS Safety Report 10766161 (Version 1)
Quarter: 2015Q1

REPORT INFORMATION
  Report Type: Spontaneous
  Country: US (occurrence: None)
  Receive Date: 20150204
  Receipt Date: 20150204
  Transmission Date: 20150721
  Serious: Yes (Hospitalization)
  Sender: FDA-Public Use
  Company Number: None

PATIENT
  Age: 81 Year
  Sex: Male
  Weight: 86 kg

DRUGS (13)
  1. ASPIRIN. [Concomitant]
     Active Substance: ASPIRIN
  2. VALSARTAN (DIOVAN) [Concomitant]
  3. PENTOPRAZOLE (PROTONIX) [Concomitant]
  4. MULTIPLE VITAMINS-MINERALS (MENS MULTIVITAMIN PLUS PO) [Concomitant]
  5. SPIRONOLACTONE (ALDACTONE) [Concomitant]
  6. PLAVIX [Concomitant]
     Active Substance: CLOPIDOGREL BISULFATE
  7. GABAPENTIN (NEURONTIN) [Concomitant]
  8. SPIRONOLACTONE 25 MG [Suspect]
     Active Substance: SPIRONOLACTONE
     Indication: CORONARY ARTERY DISEASE
     Dosage: 0.5 QD ORAL
     Route: 048
  9. SPIRONOLACTONE 25 MG [Suspect]
     Active Substance: SPIRONOLACTONE
     Indication: HYPERTENSION
     Dosage: 0.5 QD ORAL
     Route: 048
  10. FUROSEMIDE (LASIX) [Concomitant]
  11. NEBIVOLOL (BYSTOLIC) [Concomitant]
  12. SULFAMETHOXAZOLE-TRIMETHOPRIM (BACTRIM DS) [Concomitant]
  13. PRAVASTATIN (PRAVACHOL) [Concomitant]

REACTIONS (12)
  - Pancreatic mass [None]
  - Neuropathy peripheral [None]
  - Urinary tract infection [None]
  - Back injury [None]
  - Blood sodium decreased [None]
  - Peripheral swelling [None]
  - Asthenia [None]
  - Inappropriate antidiuretic hormone secretion [None]
  - Hypotension [None]
  - Balance disorder [None]
  - Fall [None]
  - Fatigue [None]

NARRATIVE: CASE EVENT DATE: 20140308
